FAERS Safety Report 19160388 (Version 1)
Quarter: 2021Q2

REPORT INFORMATION
  Report Type: Spontaneous
  Country: CA (occurrence: CA)
  Receive Date: 20210420
  Receipt Date: 20210420
  Transmission Date: 20210717
  Serious: Yes (Other)
  Sender: FDA-Public Use
  Company Number: CA-PFIZER INC-2021344118

PATIENT
  Age: 58 Year
  Sex: Female

DRUGS (9)
  1. ASA [Concomitant]
     Active Substance: ASPIRIN
     Dosage: 1 DF (DOSAGE INFORMATION FOR ASA NOT AVAILABLE)
     Route: 065
  2. BISOPROLOL [Concomitant]
     Active Substance: BISOPROLOL
     Dosage: 1 DF (DOSAGE INFORMATION FOR BISOPROLOL NOT AVAILABLE)
     Route: 065
  3. XELJANZ XR [Suspect]
     Active Substance: TOFACITINIB CITRATE
     Indication: RHEUMATOID ARTHRITIS
     Dosage: 11 MG, 1X/DAY
     Route: 048
     Dates: start: 20210308, end: 202104
  4. CORTISONE [Concomitant]
     Active Substance: CORTISONE
     Dosage: UNK
     Dates: start: 20210318
  5. ASA [Concomitant]
     Active Substance: ASPIRIN
     Route: 065
  6. SULFASALAZINE. [Concomitant]
     Active Substance: SULFASALAZINE
     Indication: RHEUMATOID ARTHRITIS
     Dosage: 1 DF (DOSAGE UNKNOWN)
     Route: 065
     Dates: start: 202005
  7. ASA [Concomitant]
     Active Substance: ASPIRIN
     Route: 065
  8. CRESTOR [Concomitant]
     Active Substance: ROSUVASTATIN CALCIUM
     Dosage: 40 MG
     Route: 065
  9. METHOTREXATE. [Concomitant]
     Active Substance: METHOTREXATE
     Indication: RHEUMATOID ARTHRITIS
     Dosage: 1 DF, WEEKLY (EXACT DOSE FOR METHOTREXATE NOT AVAILABLE)
     Route: 065
     Dates: start: 201912

REACTIONS (4)
  - Drug ineffective [Unknown]
  - Haemoptysis [Not Recovered/Not Resolved]
  - Anxiety [Unknown]
  - Sleep disorder [Recovering/Resolving]
